FAERS Safety Report 6337149-2 (Version None)
Quarter: 2009Q3

REPORT INFORMATION
  Report Type: 
  Country: None (occurrence: None)
  Receive Date: 20090831
  Receipt Date: 20090824
  Transmission Date: 20100115
  Serious: Yes (Hospitalization)
  Sender: FDA-Public Use
  Company Number: 2009AL005561

PATIENT
  Age: 44 Year
  Sex: Female

DRUGS (13)
  1. CITALOPRAM HYDROBROMIDE [Suspect]
     Dosage: 20 MG; QD;
  2. ASPIRIN [Concomitant]
  3. SIMVASTATIN [Concomitant]
  4. ATENOLOL [Concomitant]
  5. ISOSORBIDE MONONITRATE [Concomitant]
  6. BENDROFLUMETHIAZIDE [Concomitant]
  7. FELODIPINE [Concomitant]
  8. PROPOFOL [Concomitant]
  9. REMIFENTANIL [Concomitant]
  10. ROCURONIUM BROMIDE [Concomitant]
  11. DEXAMETHASONE [Concomitant]
  12. MORPHINE ANALGESIA [Concomitant]
  13. METHYLENE BLUE INFUSION [Concomitant]

REACTIONS (7)
  - AKATHISIA [None]
  - BLOOD PHOSPHORUS INCREASED [None]
  - GLASGOW COMA SCALE ABNORMAL [None]
  - INFLAMMATION [None]
  - OXYGEN SATURATION DECREASED [None]
  - SEROTONIN SYNDROME [None]
  - WHITE BLOOD CELL COUNT INCREASED [None]
